FAERS Safety Report 8997356 (Version 1)
Quarter: 2013Q1

REPORT INFORMATION
  Report Type: Spontaneous
  Country: JP (occurrence: JP)
  Receive Date: 20130104
  Receipt Date: 20130104
  Transmission Date: 20140127
  Serious: Yes (Disabling)
  Sender: FDA-Public Use
  Company Number: JP-SANOFI-AVENTIS-2012SA090584

PATIENT
  Age: 83 Year
  Sex: Female
  Weight: 37 kg

DRUGS (14)
  1. CLEXANE [Suspect]
     Indication: THROMBOSIS PROPHYLAXIS
     Route: 058
     Dates: start: 20121120, end: 20121122
  2. CEFMETAZOLE SODIUM [Concomitant]
     Indication: PROPHYLAXIS
     Route: 042
     Dates: start: 20121120, end: 20121122
  3. PANABATE [Concomitant]
     Indication: PROPHYLAXIS
     Dosage: CONTINUOUS DRIP
     Route: 042
     Dates: start: 20121120, end: 20121122
  4. SOLDEM 3A [Concomitant]
     Indication: FLUID REPLACEMENT
     Dosage: DOSE: 1 BAG TID
     Route: 042
     Dates: start: 20121120
  5. FAMOTIDINE [Concomitant]
     Indication: PROPHYLAXIS
     Route: 042
     Dates: start: 20121120
  6. CYANOCOBALAMIN/PYRIDOXINE HYDROCHLORIDE/THIAMINE DISULFIDE [Concomitant]
     Indication: FLUID REPLACEMENT
     Dosage: DOSE: 1 VIAL QD
     Route: 042
     Dates: start: 20121120
  7. ROPION [Concomitant]
     Indication: ANALGESIC THERAPY
     Route: 042
     Dates: start: 20121120, end: 20121122
  8. SOSEGON [Concomitant]
     Indication: ANALGESIC THERAPY
     Route: 042
     Dates: start: 20121121, end: 20121121
  9. ATARAX-P [Concomitant]
     Indication: ANALGESIC THERAPY
     Route: 042
     Dates: start: 20121121, end: 20121121
  10. ROPIVACAINE [Concomitant]
     Dosage: STRENGTH: 0.2%
     Dates: start: 20121120, end: 20121120
  11. FENTANYL [Concomitant]
     Dates: start: 20121120, end: 20121120
  12. DROLEPTAN [Concomitant]
     Dates: start: 20121120, end: 20121120
  13. ULTIVA [Concomitant]
     Dates: start: 20121120, end: 20121120
  14. PROPOFOL [Concomitant]
     Dates: start: 20121120, end: 20121120

REACTIONS (4)
  - Subdural haematoma [Recovered/Resolved with Sequelae]
  - Nausea [Unknown]
  - Depressed level of consciousness [Unknown]
  - Monoplegia [Unknown]
